FAERS Safety Report 16808743 (Version 1)
Quarter: 2019Q3

REPORT INFORMATION
  Report Type: Report from Study
  Country: US (occurrence: US)
  Receive Date: 20190916
  Receipt Date: 20190916
  Transmission Date: 20191005
  Serious: Yes (Other)
  Sender: FDA-Public Use
  Company Number: US-ROCHE-2411765

PATIENT

DRUGS (2)
  1. INTERFERON ALFA-2A [Suspect]
     Active Substance: INTERFERON ALFA-2A
     Indication: RENAL CANCER METASTATIC
     Dosage: 3.0 MU/M2 THREE TIMES WEEKLY ON MONDAY-WEDNESDAY-FRIDAY
     Route: 058
  2. CAPECITABINE. [Suspect]
     Active Substance: CAPECITABINE
     Indication: RENAL CANCER METASTATIC
     Dosage: DAYS 1-14 AND 22-36, CYCLES REPEATED EVERY 6 WEEKS
     Route: 048

REACTIONS (1)
  - Mucosal inflammation [Unknown]
